FAERS Safety Report 18919015 (Version 1)
Quarter: 2021Q1

REPORT INFORMATION
  Report Type: Spontaneous
  Country: US (occurrence: US)
  Receive Date: 20210220
  Receipt Date: 20210220
  Transmission Date: 20210420
  Serious: Yes (Other)
  Sender: FDA-Public Use
  Company Number: US-ROCHE-2771307

PATIENT
  Age: 71 Year
  Sex: Female

DRUGS (5)
  1. ACTEMRA [Suspect]
     Active Substance: TOCILIZUMAB
     Indication: RHEUMATOID ARTHRITIS
     Dosage: PFS 162MG/0.9ML
     Route: 058
     Dates: start: 202011
  2. ACTEMRA [Suspect]
     Active Substance: TOCILIZUMAB
  3. ELIQUIS [Concomitant]
     Active Substance: APIXABAN
  4. ACTEMRA [Suspect]
     Active Substance: TOCILIZUMAB
  5. SERTRALINE [Concomitant]
     Active Substance: SERTRALINE HYDROCHLORIDE

REACTIONS (2)
  - Diabetes mellitus [Unknown]
  - Chronic obstructive pulmonary disease [Unknown]

NARRATIVE: CASE EVENT DATE: 20210211
